FAERS Safety Report 10748505 (Version 1)
Quarter: 2015Q1

REPORT INFORMATION
  Report Type: Spontaneous
  Country: US (occurrence: None)
  Receive Date: 20150128
  Receipt Date: 20150128
  Transmission Date: 20150721
  Serious: Yes (Death)
  Sender: FDA-Public Use
  Company Number: None

PATIENT
  Age: 78 Year
  Sex: Female
  Weight: 68.04 kg

DRUGS (1)
  1. XARELTO [Suspect]
     Active Substance: RIVAROXABAN
     Indication: ATRIAL FIBRILLATION
     Dosage: 1 PILL EVERY DAY
     Route: 048
     Dates: start: 20140101, end: 20141117

REACTIONS (6)
  - Gastrointestinal ischaemia [None]
  - Haematoma [None]
  - Hypotension [None]
  - Metabolic acidosis [None]
  - Renal failure [None]
  - Cardio-respiratory arrest [None]

NARRATIVE: CASE EVENT DATE: 20141122
